FAERS Safety Report 23156893 (Version 1)
Quarter: 2023Q4

REPORT INFORMATION
  Report Type: Spontaneous
  Country: GB (occurrence: GB)
  Receive Date: 20231108
  Receipt Date: 20231108
  Transmission Date: 20240109
  Serious: Yes (Other)
  Sender: FDA-Public Use
  Company Number: GB-MHRA-MED-202310301039525140-WHTYK

PATIENT
  Age: 39 Year
  Sex: Female
  Weight: 99 kg

DRUGS (1)
  1. IBUPROFEN [Suspect]
     Active Substance: IBUPROFEN
     Indication: Pain
     Dosage: 400 MILLIGRAM, ONCE A DAY
     Route: 065
     Dates: start: 20231017, end: 20231017

REACTIONS (3)
  - Asthma [Recovered/Resolved]
  - Maternal exposure during breast feeding [Unknown]
  - Medication error [Unknown]

NARRATIVE: CASE EVENT DATE: 20231017
